FAERS Safety Report 24638106 (Version 1)
Quarter: 2024Q4

REPORT INFORMATION
  Report Type: Report from Study
  Country: CA (occurrence: CA)
  Receive Date: 20241119
  Receipt Date: 20241119
  Transmission Date: 20250115
  Serious: Yes (Other)
  Sender: ALEXION PHARMACEUTICALS
  Company Number: CA-AstraZeneca-CH-00744538A

PATIENT

DRUGS (17)
  1. BENRALIZUMAB [Suspect]
     Active Substance: BENRALIZUMAB
     Indication: Asthma
     Dosage: 30 MILLIGRAM
  2. BENRALIZUMAB [Suspect]
     Active Substance: BENRALIZUMAB
     Dosage: 30 MILLIGRAM
  3. BENRALIZUMAB [Suspect]
     Active Substance: BENRALIZUMAB
     Dosage: 30 MILLIGRAM
  4. BENRALIZUMAB [Suspect]
     Active Substance: BENRALIZUMAB
     Dosage: 30 MILLIGRAM
  5. BACLOFEN [Concomitant]
     Active Substance: BACLOFEN
  6. BACLOFEN [Concomitant]
     Active Substance: BACLOFEN
     Route: 065
  7. LEFLUNOMIDE [Concomitant]
     Active Substance: LEFLUNOMIDE
  8. LEFLUNOMIDE [Concomitant]
     Active Substance: LEFLUNOMIDE
     Route: 065
  9. FENTANYL [Concomitant]
     Active Substance: FENTANYL
  10. AMITRIPTYLINE [Concomitant]
     Active Substance: AMITRIPTYLINE
  11. PREDNISONE [Concomitant]
     Active Substance: PREDNISONE
  12. VENTOLIN [Concomitant]
     Active Substance: ALBUTEROL SULFATE
  13. DYMISTA [Concomitant]
     Active Substance: AZELASTINE HYDROCHLORIDE\FLUTICASONE PROPIONATE
  14. ACYCLOVIR [Concomitant]
     Active Substance: ACYCLOVIR
  15. BREO ELLIPTA [Concomitant]
     Active Substance: FLUTICASONE FUROATE\VILANTEROL TRIFENATATE
  16. RANITIDINE [Concomitant]
     Active Substance: RANITIDINE
  17. RABEPRAZOLE [Concomitant]
     Active Substance: RABEPRAZOLE

REACTIONS (2)
  - Choking [Unknown]
  - Dyspnoea [Unknown]
